FAERS Safety Report 13189721 (Version 1)
Quarter: 2017Q1

REPORT INFORMATION
  Report Type: Spontaneous
  Country: BR (occurrence: BR)
  Receive Date: 20170206
  Receipt Date: 20170206
  Transmission Date: 20170428
  Serious: Yes (Other)
  Sender: FDA-Public Use
  Company Number: BR-BAYER-2017-014321

PATIENT
  Sex: Female

DRUGS (1)
  1. MIRENA [Suspect]
     Active Substance: LEVONORGESTREL
     Indication: UTERINE LEIOMYOMA
     Dosage: 20 MCG/24HR, CONT
     Route: 015
     Dates: start: 20161125, end: 20161126

REACTIONS (9)
  - Feeling abnormal [None]
  - Haemorrhagic anaemia [None]
  - Procedural haemorrhage [None]
  - Abdominal pain lower [None]
  - Contraindicated device used [None]
  - Menorrhagia [None]
  - Medical device monitoring error [None]
  - Device expulsion [None]
  - Procedural pain [None]

NARRATIVE: CASE EVENT DATE: 20161125
